FAERS Safety Report 17086494 (Version 1)
Quarter: 2019Q4

REPORT INFORMATION
  Report Type: Spontaneous
  Country: US (occurrence: US)
  Receive Date: 20191128
  Receipt Date: 20191128
  Transmission Date: 20200122
  Serious: No
  Sender: FDA-Public Use
  Company Number: US-UCBSA-2018042749

PATIENT
  Age: 55 Year
  Sex: Female

DRUGS (7)
  1. RASAGILINE. [Concomitant]
     Active Substance: RASAGILINE
     Indication: PARKINSON^S DISEASE
     Dosage: 1 DF, ONCE DAILY (QD)
     Dates: start: 201709
  2. ARTANE [Concomitant]
     Active Substance: TRIHEXYPHENIDYL HYDROCHLORIDE
     Indication: PARKINSON^S DISEASE
     Dosage: UNK, ONCE DAILY (QD)
     Dates: start: 201712
  3. PROTONIX [Concomitant]
     Active Substance: PANTOPRAZOLE SODIUM
     Indication: GASTROOESOPHAGEAL REFLUX DISEASE
     Dosage: 40 MG, ONCE DAILY (QD)
  4. NEUPRO [Suspect]
     Active Substance: ROTIGOTINE
     Indication: PARKINSON^S DISEASE
     Dosage: UNKNOWN
  5. NEUPRO [Suspect]
     Active Substance: ROTIGOTINE
     Dosage: 8 MG, ONCE DAILY (QD)
     Dates: start: 201712
  6. SYNTHROID [Concomitant]
     Active Substance: LEVOTHYROXINE SODIUM
     Indication: PRODUCT USED FOR UNKNOWN INDICATION
     Dosage: 112 ?G, ONCE DAILY (QD)
  7. CYTOMEL [Concomitant]
     Active Substance: LIOTHYRONINE SODIUM
     Indication: PRODUCT USED FOR UNKNOWN INDICATION
     Dosage: 10 ?G, ONCE DAILY (QD)

REACTIONS (3)
  - Asthma [Not Recovered/Not Resolved]
  - Somnolence [Not Recovered/Not Resolved]
  - Product adhesion issue [Unknown]

NARRATIVE: CASE EVENT DATE: 201712
